FAERS Safety Report 17900481 (Version 1)
Quarter: 2020Q2

REPORT INFORMATION
  Report Type: Spontaneous
  Country: US (occurrence: US)
  Receive Date: 20200615
  Receipt Date: 20200615
  Transmission Date: 20200714
  Serious: Yes (Other)
  Sender: FDA-Public Use
  Company Number: None

PATIENT
  Age: 85 Year
  Sex: Male
  Weight: 85.5 kg

DRUGS (23)
  1. AMLODIPINE [Concomitant]
     Active Substance: AMLODIPINE BESYLATE
     Dates: start: 20200523, end: 20200525
  2. ATENOLOL. [Concomitant]
     Active Substance: ATENOLOL
     Dates: start: 20200523, end: 20200525
  3. CHOLECALCIFEROL [Concomitant]
     Active Substance: CHOLECALCIFEROL
     Dates: start: 20200523, end: 20200530
  4. DIGOXIN. [Concomitant]
     Active Substance: DIGOXIN
     Dates: start: 20200525, end: 20200526
  5. FAMOTIDINE. [Concomitant]
     Active Substance: FAMOTIDINE
     Dates: start: 20200525, end: 20200530
  6. REMDESIVIR. [Suspect]
     Active Substance: REMDESIVIR
     Indication: COVID-19
     Dosage: ?          OTHER FREQUENCY:ONCE;?
     Route: 042
     Dates: start: 20200524, end: 20200524
  7. AMPICILLIN-SULBACTAM [Concomitant]
     Active Substance: AMPICILLIN SODIUM\SULBACTAM SODIUM
     Dates: start: 20200526, end: 20200527
  8. AMIODARONE [Concomitant]
     Active Substance: AMIODARONE
     Dates: start: 20200525, end: 20200525
  9. ETOMIDATE. [Concomitant]
     Active Substance: ETOMIDATE
     Dates: start: 20200525, end: 20200525
  10. GLUCAGON. [Concomitant]
     Active Substance: GLUCAGON
     Dates: start: 20200523, end: 20200530
  11. HEPARIN [Concomitant]
     Active Substance: HEPARIN SODIUM
     Dates: start: 20200525, end: 20200530
  12. ACETAMINOPHEN. [Concomitant]
     Active Substance: ACETAMINOPHEN
     Dates: start: 20200523, end: 20200527
  13. CHLORHEXIDINE GLUCONATE. [Concomitant]
     Active Substance: CHLORHEXIDINE GLUCONATE
     Dates: start: 20200525, end: 20200530
  14. DEXMEDETOMIDINE. [Concomitant]
     Active Substance: DEXMEDETOMIDINE
     Dates: start: 20200527, end: 20200528
  15. CALCIUM GLUCONATE. [Concomitant]
     Active Substance: CALCIUM GLUCONATE
     Dates: start: 20200524, end: 20200526
  16. APIXABAN [Concomitant]
     Active Substance: APIXABAN
     Dates: start: 20200523, end: 20200525
  17. ATORVASTATIN [Concomitant]
     Active Substance: ATORVASTATIN
     Dates: start: 20200523, end: 20200530
  18. DEXTROSE. [Concomitant]
     Active Substance: DEXTROSE
     Dates: start: 20200523, end: 20200530
  19. GLYCOPYRROLATE. [Concomitant]
     Active Substance: GLYCOPYRROLATE
     Dates: start: 20200530, end: 20200530
  20. REMDESIVIR. [Suspect]
     Active Substance: REMDESIVIR
     Indication: COVID-19
     Route: 042
     Dates: start: 20200525, end: 20200528
  21. ALBUTERAL [Concomitant]
     Active Substance: ALBUTEROL
     Dates: start: 20200523, end: 20200530
  22. FENTANYL. [Concomitant]
     Active Substance: FENTANYL
     Dates: start: 20200525, end: 20200530
  23. INSULIN LISPRO PEN [Concomitant]
     Dates: start: 20200523, end: 20200525

REACTIONS (5)
  - General physical health deterioration [None]
  - Gastric fluid analysis abnormal [None]
  - Abdominal distension [None]
  - Abdominal infection [None]
  - Gastrointestinal obstruction [None]

NARRATIVE: CASE EVENT DATE: 20200528
